FAERS Safety Report 14073976 (Version 1)
Quarter: 2017Q4

REPORT INFORMATION
  Report Type: Spontaneous
  Country: CN (occurrence: CN)
  Receive Date: 20171011
  Receipt Date: 20171011
  Transmission Date: 20180321
  Serious: Yes (Other)
  Sender: FDA-Public Use
  Company Number: CN-PFIZER INC-2017436880

PATIENT
  Age: 76 Year
  Sex: Female
  Weight: 55 kg

DRUGS (2)
  1. MEDROL [Suspect]
     Active Substance: METHYLPREDNISOLONE
     Dosage: 8 MG, 1X/DAY
     Route: 048
     Dates: start: 20170621, end: 20170807
  2. MEDROL [Suspect]
     Active Substance: METHYLPREDNISOLONE
     Indication: RHEUMATOID ARTHRITIS
     Dosage: 4 MG, 1X/DAY
     Route: 048
     Dates: start: 20150621, end: 20170620

REACTIONS (2)
  - Central obesity [Unknown]
  - Cushingoid [Unknown]

NARRATIVE: CASE EVENT DATE: 20170807
